FAERS Safety Report 24681471 (Version 4)
Quarter: 2025Q1

REPORT INFORMATION
  Report Type: Spontaneous
  Country: JP (occurrence: JP)
  Receive Date: 20241130
  Receipt Date: 20250221
  Transmission Date: 20250408
  Serious: Yes (Hospitalization)
  Sender: ABBVIE
  Company Number: JP-ABBVIE-6024799

PATIENT
  Age: 67 Year
  Sex: Male

DRUGS (3)
  1. RINVOQ [Suspect]
     Active Substance: UPADACITINIB
     Indication: Colitis ulcerative
     Route: 048
     Dates: start: 20240920, end: 20241115
  2. LASCUFLOXACIN HYDROCHLORIDE [Suspect]
     Active Substance: LASCUFLOXACIN HYDROCHLORIDE
     Indication: Pyrexia
     Route: 048
     Dates: start: 20241114
  3. MESALAMINE [Concomitant]
     Active Substance: MESALAMINE
     Indication: Colitis ulcerative
     Route: 048
     Dates: start: 20160929

REACTIONS (2)
  - Interstitial lung disease [Recovered/Resolved]
  - Pyrexia [Unknown]

NARRATIVE: CASE EVENT DATE: 20241112
